FAERS Safety Report 9272954 (Version 2)
Quarter: 2013Q4

REPORT INFORMATION
  Report Type: Spontaneous
  Country: GB (occurrence: GB)
  Receive Date: 20130506
  Receipt Date: 20131021
  Transmission Date: 20140711
  Serious: Yes (Life-Threatening, Hospitalization, Other)
  Sender: FDA-Public Use
  Company Number: GB-TEVA-402313ISR

PATIENT
  Age: 64 Year
  Sex: Male
  Weight: 83 kg

DRUGS (8)
  1. SIMVASTATIN [Suspect]
     Route: 048
     Dates: start: 20030423, end: 20121127
  2. SIMVASTATIN [Suspect]
     Route: 048
     Dates: start: 20121127, end: 20130319
  3. AMLODIPINE [Concomitant]
     Dates: start: 20030423
  4. ASPIRIN [Concomitant]
     Route: 048
  5. RAMIPRIL [Concomitant]
     Route: 048
     Dates: start: 20030521
  6. ATENOLOL [Concomitant]
     Route: 048
     Dates: start: 20030811, end: 20120314
  7. BISOPROLOL [Concomitant]
     Dates: start: 20120314
  8. ATORVASTATIN [Concomitant]

REACTIONS (2)
  - Myocardial infarction [Recovered/Resolved]
  - Atrial fibrillation [Recovered/Resolved]
